FAERS Safety Report 15825066 (Version 1)
Quarter: 2019Q1

REPORT INFORMATION
  Report Type: Spontaneous
  Country: US (occurrence: US)
  Receive Date: 20190115
  Receipt Date: 20190115
  Transmission Date: 20190417
  Serious: No
  Sender: FDA-Public Use
  Company Number: US-BIOGEN-2019BI00682314

PATIENT
  Sex: Female

DRUGS (2)
  1. TYSABRI [Suspect]
     Active Substance: NATALIZUMAB
     Indication: MULTIPLE SCLEROSIS
     Route: 042
     Dates: start: 20141125
  2. TYSABRI [Suspect]
     Active Substance: NATALIZUMAB
     Route: 042
     Dates: start: 20100616, end: 20120409

REACTIONS (3)
  - Vein disorder [Not Recovered/Not Resolved]
  - Balance disorder [Not Recovered/Not Resolved]
  - Hypoacusis [Not Recovered/Not Resolved]
